FAERS Safety Report 16667933 (Version 1)
Quarter: 2019Q3

REPORT INFORMATION
  Report Type: Spontaneous
  Country: US (occurrence: US)
  Receive Date: 20190805
  Receipt Date: 20190805
  Transmission Date: 20191004
  Serious: No
  Sender: FDA-Public Use
  Company Number: US-GLENMARK PHARMACEUTICALS-2019GMK041368

PATIENT

DRUGS (1)
  1. TACROLIMUS. [Suspect]
     Active Substance: TACROLIMUS
     Indication: ROSACEA
     Dosage: UNK
     Route: 065
     Dates: start: 20190515

REACTIONS (3)
  - Feeling hot [Unknown]
  - Product use in unapproved indication [Unknown]
  - Pain of skin [Unknown]

NARRATIVE: CASE EVENT DATE: 20190515
